FAERS Safety Report 7029156-1 (Version None)
Quarter: 2010Q4

REPORT INFORMATION
  Report Type: 
  Country: None (occurrence: None)
  Receive Date: 20101005
  Receipt Date: 20100922
  Transmission Date: 20110411
  Serious: Yes (Other)
  Sender: FDA-Public Use
  Company Number: US-PFIZER INC-2010109038

PATIENT
  Sex: Female

DRUGS (1)
  1. VESICARE [Suspect]
     Dosage: UNK

REACTIONS (4)
  - CONSTIPATION [None]
  - EYE DISORDER [None]
  - POLLAKIURIA [None]
  - URINARY RETENTION [None]
